FAERS Safety Report 24862610 (Version 3)
Quarter: 2025Q1

REPORT INFORMATION
  Report Type: Report from Study
  Country: CO (occurrence: CO)
  Receive Date: 20250120
  Receipt Date: 20250215
  Transmission Date: 20250409
  Serious: Yes (Death, Life-Threatening, Hospitalization, Other)
  Sender: AMGEN
  Company Number: CO-AMGEN-COLSL2024206348

PATIENT
  Age: 69 Year
  Sex: Male

DRUGS (1)
  1. VECTIBIX [Suspect]
     Active Substance: PANITUMUMAB
     Indication: Colorectal cancer metastatic
     Dosage: 258 MILLIGRAM, Q2WK, BIWEEKLY
     Route: 040
     Dates: start: 20240921, end: 20241209

REACTIONS (5)
  - Colorectal cancer metastatic [Fatal]
  - Urinary tract infection [Recovering/Resolving]
  - Thrombocytopenia [Recovering/Resolving]
  - Dry skin [Not Recovered/Not Resolved]
  - Rash [Not Recovered/Not Resolved]

NARRATIVE: CASE EVENT DATE: 20240101
